FAERS Safety Report 9795345 (Version 2)
Quarter: 2014Q1

REPORT INFORMATION
  Report Type: Spontaneous
  Country: US (occurrence: US)
  Receive Date: 20140103
  Receipt Date: 20140120
  Transmission Date: 20141002
  Serious: No
  Sender: FDA-Public Use
  Company Number: US-009507513-1312USA011846

PATIENT
  Sex: Male

DRUGS (2)
  1. ASMANEX TWISTHALER [Suspect]
     Dosage: 220 MCG 1 STANDARD DOSE CANISTER OF 0.135, 1 DF, QD
     Route: 055
     Dates: end: 20131224
  2. VENTOLIN HFA [Concomitant]
     Dosage: UNK

REACTIONS (3)
  - Respiratory tract infection [Unknown]
  - Product quality issue [Unknown]
  - Drug dose omission [Unknown]
